FAERS Safety Report 8586179-9 (Version None)
Quarter: 2012Q3

REPORT INFORMATION
  Report Type: 
  Country: None (occurrence: None)
  Receive Date: 20120730
  Receipt Date: 20120719
  Transmission Date: 20120928
  Serious: Yes (Other)
  Sender: FDA-Public Use
  Company Number: CN-1193337

PATIENT
  Sex: Female

DRUGS (1)
  1. PROPYLENE GLYCOL [Suspect]
     Dosage: (2-3 DROPS OPHTHALMIC)
     Route: 047
     Dates: start: 20120617, end: 20120617

REACTIONS (1)
  - SHOCK [None]
